FAERS Safety Report 23290371 (Version 2)
Quarter: 2025Q3

REPORT INFORMATION
  Report Type: Report from Study
  Country: US (occurrence: US)
  Receive Date: 20231213
  Receipt Date: 20250930
  Transmission Date: 20251020
  Serious: Yes (Other)
  Sender: ABBVIE
  Company Number: US-ABBVIE-5528461

PATIENT
  Age: 58 Year
  Sex: Female
  Weight: 86.182 kg

DRUGS (2)
  1. SKYRIZI [Suspect]
     Active Substance: RISANKIZUMAB-RZAA
     Indication: Crohn^s disease
     Route: 042
     Dates: start: 20230901, end: 20240716
  2. SOLU-MEDROL [Concomitant]
     Active Substance: METHYLPREDNISOLONE SODIUM SUCCINATE
     Indication: Inflammation

REACTIONS (13)
  - Multiple sclerosis [Unknown]
  - COVID-19 [Recovering/Resolving]
  - Oropharyngeal discomfort [Unknown]
  - Asthenia [Not Recovered/Not Resolved]
  - Ear pain [Recovering/Resolving]
  - Myalgia [Not Recovered/Not Resolved]
  - Neurological symptom [Recovering/Resolving]
  - Ear discomfort [Recovering/Resolving]
  - Drug ineffective [Unknown]
  - Gait inability [Recovering/Resolving]
  - Arthritis [Unknown]
  - Skin disorder [Unknown]
  - Arthralgia [Unknown]

NARRATIVE: CASE EVENT DATE: 20230101
